FAERS Safety Report 6021429-4 (Version None)
Quarter: 2008Q4

REPORT INFORMATION
  Report Type: 
  Country: None (occurrence: None)
  Receive Date: 20081229
  Receipt Date: 20081218
  Transmission Date: 20090506
  Serious: Yes (Death, Hospitalization)
  Sender: FDA-Public Use
  Company Number: US-JNJFOC-20081205317

PATIENT
  Age: 53 Year
  Sex: Female

DRUGS (7)
  1. ACETAMINOPHEN/ DIPHENHYDRAMINE [Suspect]
     Indication: SUICIDE ATTEMPT
     Route: 048
  2. ASPIRIN [Suspect]
     Indication: SUICIDE ATTEMPT
     Route: 048
  3. VENLAFAXINE [Suspect]
     Indication: SUICIDE ATTEMPT
     Route: 048
  4. FLUOXETINE [Suspect]
     Indication: SUICIDE ATTEMPT
     Route: 048
  5. ACETAMINOPHEN AND HYDROCODONE BITARTRATE [Suspect]
     Indication: DRUG USE FOR UNKNOWN INDICATION
     Route: 048
  6. CLINDAMYCIN HCL [Suspect]
     Indication: SUICIDE ATTEMPT
     Route: 048
  7. OMEPRAZOLE [Suspect]
     Indication: SUICIDE ATTEMPT
     Route: 048

REACTIONS (1)
  - DRUG TOXICITY [None]
